FAERS Safety Report 4393311-X (Version None)
Quarter: 2004Q3

REPORT INFORMATION
  Report Type: 
  Country: None (occurrence: None)
  Receive Date: 20040701
  Receipt Date: 20040616
  Transmission Date: 20050211
  Serious: Yes (Hospitalization)
  Sender: FDA-Public Use
  Company Number: CA-2004-026155

PATIENT
  Age: 54 Year
  Sex: Female

DRUGS (4)
  1. BETASERON [Suspect]
     Indication: MULTIPLE SCLEROSIS
     Dosage: 4 MIU, EVERY 2D, SUBCUTANEOUS
     Route: 058
     Dates: start: 19890502
  2. ANTIBIOTICS [Concomitant]
  3. DILAUDID [Concomitant]
  4. GRAVOL TAB [Concomitant]

REACTIONS (6)
  - ASTHENIA [None]
  - BLADDER SPASM [None]
  - CYSTITIS [None]
  - DISEASE RECURRENCE [None]
  - POST PROCEDURAL COMPLICATION [None]
  - STAPHYLOCOCCAL INFECTION [None]
